FAERS Safety Report 5762043-5 (Version None)
Quarter: 2008Q2

REPORT INFORMATION
  Report Type: 
  Country: None (occurrence: None)
  Receive Date: 20080603
  Receipt Date: 20080520
  Transmission Date: 20081010
  Serious: Yes (Other)
  Sender: FDA-Public Use
  Company Number: 19417

PATIENT
  Sex: Female

DRUGS (1)
  1. CYTARABINE [Suspect]

REACTIONS (2)
  - DRUG TOXICITY [None]
  - PARAESTHESIA [None]
